FAERS Safety Report 4618935-3 (Version None)
Quarter: 2005Q2

REPORT INFORMATION
  Report Type: 
  Country: None (occurrence: None)
  Receive Date: 20050302
  Receipt Date: 20040712
  Transmission Date: 20051028
  Serious: Yes (Other)
  Sender: FDA-Public Use
  Company Number: 1199510126

PATIENT
  Age: 59 Year
  Sex: Male

DRUGS (5)
  1. TRASYLOL [Suspect]
     Indication: HAEMORRHAGE
     Dosage: 200 ML, TOTAL DAILY, INTRAVENOUS
     Route: 042
     Dates: start: 19941111
  2. SUFENTANIL CITRATE [Concomitant]
  3. VECURONIUM [Concomitant]
  4. MIDAZOLAM [Concomitant]
  5. ANTI-HISTAMINE TAB [Concomitant]

REACTIONS (4)
  - ANAPHYLACTIC REACTION [None]
  - BRADYCARDIA [None]
  - HYPOTENSION [None]
  - LIVEDO RETICULARIS [None]
